FAERS Safety Report 9954634 (Version 1)
Quarter: 2014Q1

REPORT INFORMATION
  Report Type: Report from Study
  Country: US (occurrence: US)
  Receive Date: 20140304
  Receipt Date: 20140304
  Transmission Date: 20141002
  Serious: No
  Sender: FDA-Public Use
  Company Number: US-ABBVIE-13P-163-1083360-00

PATIENT
  Age: 18 Year
  Sex: Female

DRUGS (11)
  1. HUMIRA [Suspect]
     Indication: COLITIS ULCERATIVE
     Dosage: LOADING DOSE
     Dates: start: 20130420, end: 20130420
  2. HUMIRA [Suspect]
  3. FERROUS SULFATE [Concomitant]
     Indication: VITAMIN SUPPLEMENTATION
  4. APRISO [Concomitant]
     Indication: COLITIS ULCERATIVE
  5. BIOTIN [Concomitant]
     Indication: PRODUCT USED FOR UNKNOWN INDICATION
  6. PRENATAL VITAMINS [Concomitant]
     Indication: PRODUCT USED FOR UNKNOWN INDICATION
  7. CANASA [Concomitant]
     Indication: COLITIS ULCERATIVE
     Route: 054
  8. BIRTH CONTROL PILL [Concomitant]
     Indication: CONTRACEPTION
  9. MESALAMINE [Concomitant]
     Indication: COLITIS ULCERATIVE
  10. FLUOXETINE [Concomitant]
     Indication: DEPRESSION
  11. FLUOXETINE [Concomitant]
     Indication: ANXIETY

REACTIONS (4)
  - Pyrexia [Not Recovered/Not Resolved]
  - Colitis ulcerative [Unknown]
  - Dysuria [Recovered/Resolved]
  - Blood urine present [Unknown]
